FAERS Safety Report 8587625 (Version 5)
Quarter: 2012Q4

REPORT INFORMATION
  Report Type: 
  Country: CA (occurrence: CA)
  Receive Date: 20120531
  Receipt Date: 20120903
  Transmission Date: 20130627
  Serious: Yes (Hospitalization, Other)
  Sender: FDA-Public Use
  Company Number: PHHY2012CA046017

PATIENT
  Age: 39 None
  Sex: Female

DRUGS (23)
  1. MYFORTIC [Suspect]
     Indication: LUPUS NEPHRITIS
     Dosage: 360 mg, BID
     Route: 048
     Dates: start: 20111205
  2. MYFORTIC [Suspect]
     Dosage: 360 mg, UNK
     Route: 048
     Dates: start: 20120209, end: 20120210
  3. MYFORTIC [Suspect]
     Dosage: 180 mg, UNK
     Dates: start: 20120213
  4. MYFORTIC [Suspect]
     Dosage: 360 mg, QD
     Dates: start: 20120218
  5. MYFORTIC [Suspect]
     Dosage: 180 mg, BID
     Dates: start: 20120219, end: 20120220
  6. MYFORTIC [Suspect]
     Dosage: 180 mg, UNK
  7. PREDNISONE [Concomitant]
     Dosage: 60 UKN, UNK
  8. PREDNISONE [Concomitant]
     Dosage: 45 mg, UNK
  9. PREDNISONE [Concomitant]
     Dosage: 50 mg, QD
     Dates: start: 20120208
  10. RAMIPRIL [Concomitant]
     Dosage: 10 mg, BID
  11. RAMIPRIL [Concomitant]
     Dosage: 10 mg, BID
     Dates: start: 20120203
  12. ADALAT [Concomitant]
     Dosage: UNK UKN, UNK
  13. VITAMIN D [Concomitant]
     Dosage: 1000 U, UNK
  14. CALCIUM CARBONATE [Concomitant]
     Dosage: 1250 mg, TID
  15. IRON [Concomitant]
     Dosage: 300 UKN, UNK
  16. PANTOLOC [Concomitant]
     Dosage: 40 mg, UNK
  17. HYDROXYZINE [Concomitant]
  18. ENOXAPARIN [Concomitant]
     Dosage: 40 mg, UNK
  19. HYDROXYCHLOROQUINE [Concomitant]
     Dosage: 400 mg, QID
  20. NIFEDIPINE XL [Concomitant]
     Dosage: 90 mg, UNK
     Route: 042
  21. NIFEDIPINE XL [Concomitant]
     Dosage: 1 g/kg, UNK
     Dates: start: 20120124
  22. FERROUS FUMARATE [Concomitant]
     Dosage: 300 mg, UNK
  23. PLAQUENIL [Concomitant]

REACTIONS (52)
  - Stevens-Johnson syndrome [Recovering/Resolving]
  - Rash [Recovering/Resolving]
  - Rash generalised [Recovering/Resolving]
  - Erythema [Recovering/Resolving]
  - Skin exfoliation [Recovered/Resolved]
  - Alopecia [Recovering/Resolving]
  - Swelling face [Recovering/Resolving]
  - Eye swelling [Recovering/Resolving]
  - Lip swelling [Recovering/Resolving]
  - Epistaxis [Recovering/Resolving]
  - Ear haemorrhage [Recovering/Resolving]
  - Mouth haemorrhage [Recovering/Resolving]
  - Vulvovaginal rash [Recovering/Resolving]
  - Genital ulceration [Recovered/Resolved]
  - Vaginal haemorrhage [Recovering/Resolving]
  - Pain [Recovering/Resolving]
  - Burning sensation [Recovering/Resolving]
  - Thermal burn [Recovering/Resolving]
  - Muscular weakness [Recovering/Resolving]
  - Visual impairment [Recovering/Resolving]
  - Face oedema [Recovering/Resolving]
  - Skin erosion [Recovering/Resolving]
  - Rash pruritic [Recovering/Resolving]
  - Palmar erythema [Recovering/Resolving]
  - Pruritus [Recovering/Resolving]
  - Blister [Recovering/Resolving]
  - Chapped lips [Recovering/Resolving]
  - Vision blurred [Recovering/Resolving]
  - Rash maculo-papular [Recovering/Resolving]
  - Rash macular [Recovering/Resolving]
  - Mouth ulceration [Recovering/Resolving]
  - Epidermal necrosis [Recovering/Resolving]
  - Nausea [Unknown]
  - Molluscum contagiosum [Recovering/Resolving]
  - Skin lesion [Recovering/Resolving]
  - Rash erythematous [Recovering/Resolving]
  - Swelling [Recovering/Resolving]
  - Musculoskeletal stiffness [Recovering/Resolving]
  - Neurological symptom [Recovering/Resolving]
  - Blood pressure increased [Recovering/Resolving]
  - Lower limb fracture [Recovered/Resolved]
  - Bone swelling [Recovering/Resolving]
  - Movement disorder [Recovering/Resolving]
  - Bone pain [Recovering/Resolving]
  - Fall [Recovering/Resolving]
  - Ligament rupture [Recovering/Resolving]
  - Ligament injury [Recovering/Resolving]
  - Paraesthesia [Recovering/Resolving]
  - Haematoma [Unknown]
  - Myalgia [Unknown]
  - Drug hypersensitivity [Unknown]
  - Dyspepsia [Recovering/Resolving]
